FAERS Safety Report 7582146-2 (Version None)
Quarter: 2011Q2

REPORT INFORMATION
  Report Type: 
  Country: None (occurrence: None)
  Receive Date: 20110630
  Receipt Date: 20110623
  Transmission Date: 20111010
  Serious: No
  Sender: FDA-Public Use
  Company Number: US-BIOGENIDEC-2011BI023321

PATIENT
  Age: 36 Year
  Sex: Female

DRUGS (1)
  1. TYSABRI [Suspect]
     Indication: MULTIPLE SCLEROSIS
     Route: 042
     Dates: start: 20110613

REACTIONS (6)
  - INJECTION SITE PAIN [None]
  - BODY TEMPERATURE FLUCTUATION [None]
  - HEADACHE [None]
  - NECK PAIN [None]
  - NAUSEA [None]
  - PAIN IN EXTREMITY [None]
